FAERS Safety Report 14289558 (Version 1)
Quarter: 2017Q4

REPORT INFORMATION
  Report Type: Spontaneous
  Country: US (occurrence: US)
  Receive Date: 20171214
  Receipt Date: 20171214
  Transmission Date: 20180321
  Serious: Yes (Other)
  Sender: FDA-Public Use
  Company Number: PHHY2017US184182

PATIENT
  Age: 50 Year
  Sex: Female

DRUGS (1)
  1. PHENTERMINE. [Suspect]
     Active Substance: PHENTERMINE
     Indication: WEIGHT CONTROL
     Dosage: 37.5 MG, QD
     Route: 065

REACTIONS (5)
  - Headache [Unknown]
  - Hemiparesis [Unknown]
  - Carotid artery dissection [Unknown]
  - Neck pain [Unknown]
  - Dysarthria [Unknown]
